FAERS Safety Report 7593691-8 (Version None)
Quarter: 2011Q3

REPORT INFORMATION
  Report Type: 
  Country: None (occurrence: None)
  Receive Date: 20110706
  Receipt Date: 20110622
  Transmission Date: 20111222
  Serious: Yes (Hospitalization, Other)
  Sender: FDA-Public Use
  Company Number: PHHY2011AU55539

PATIENT
  Sex: Female

DRUGS (4)
  1. TOPAMAX [Concomitant]
     Dosage: 300 MG, BID
  2. LITHIUM CARBONATE [Concomitant]
     Dosage: 20 MG, BID
  3. TEGRETOL [Suspect]
     Indication: CONVULSION
     Dosage: 500 MG, BID
     Route: 048
  4. ARIMIDEX [Concomitant]
     Indication: BREAST CANCER

REACTIONS (9)
  - WEIGHT DECREASED [None]
  - MIGRAINE [None]
  - IRRITABLE BOWEL SYNDROME [None]
  - BREAST CANCER [None]
  - HEAD INJURY [None]
  - BLOOD SODIUM DECREASED [None]
  - MUSCLE SPASMS [None]
  - PAIN [None]
  - MATERNAL EXPOSURE DURING PREGNANCY [None]
